FAERS Safety Report 12724738 (Version 5)
Quarter: 2016Q4

REPORT INFORMATION
  Report Type: Spontaneous
  Country: BE (occurrence: BE)
  Receive Date: 20160908
  Receipt Date: 20161005
  Transmission Date: 20170207
  Serious: Yes (Other)
  Sender: FDA-Public Use
  Company Number: PHHY2016BE053162

PATIENT
  Age: 18 Year
  Sex: Female

DRUGS (1)
  1. GILENYA [Suspect]
     Active Substance: FINGOLIMOD HYDROCHLORIDE
     Indication: PRODUCT USED FOR UNKNOWN INDICATION
     Dosage: 0.5 MG, QD
     Route: 048
     Dates: start: 20160305

REACTIONS (14)
  - Central nervous system inflammation [Unknown]
  - Pain [Unknown]
  - Blood cholesterol increased [Unknown]
  - Hypoaesthesia [Unknown]
  - Monocyte count increased [Unknown]
  - Muscle spasticity [Unknown]
  - Central nervous system lesion [Unknown]
  - White blood cell count decreased [Unknown]
  - Multiple sclerosis relapse [Not Recovered/Not Resolved]
  - Lymphopenia [Recovering/Resolving]
  - Neutrophil count increased [Unknown]
  - Paraesthesia [Unknown]
  - Feeling of body temperature change [Unknown]
  - Sensory disturbance [Not Recovered/Not Resolved]

NARRATIVE: CASE EVENT DATE: 20160413
